FAERS Safety Report 6100227-7 (Version None)
Quarter: 2009Q1

REPORT INFORMATION
  Report Type: 
  Country: None (occurrence: None)
  Receive Date: 20090226
  Receipt Date: 20090216
  Transmission Date: 20090719
  Serious: Yes (Death, Hospitalization)
  Sender: FDA-Public Use
  Company Number: 1000003440

PATIENT
  Age: 86 Year
  Sex: Female

DRUGS (15)
  1. CITALOPRAM HYDROBROMIDE [Suspect]
     Indication: DEPRESSION
     Dosage: 20 MG (20 MG, 1 IN 1 D), ORAL
     Route: 048
     Dates: start: 20070101, end: 20081003
  2. TIENAM (SOLUTION) [Suspect]
     Indication: INFECTION
     Dosage: 3000 MG (500 MG, 6 IN 1 D), INTRAVENOUS
     Route: 042
     Dates: start: 20080929, end: 20081006
  3. ZYVOX [Suspect]
     Indication: INFECTION
     Dosage: 1200 MG (600 MG, 2 IN 1 D), INTRAVENOUS
     Route: 042
     Dates: start: 20080801, end: 20081003
  4. PARACETAMOL [Concomitant]
  5. ENALAPRIL MALEATE [Concomitant]
  6. OMEPRAZOLE [Concomitant]
  7. ACFOL [Concomitant]
  8. EMCONCOR (TABLETS) [Concomitant]
  9. EUTIROX (TABLETS) [Concomitant]
  10. FERROSANOL (TABLETS) [Concomitant]
  11. LEXATIN (TABLETS) [Concomitant]
  12. SINTROM [Concomitant]
  13. EMPORTAL [Concomitant]
  14. ADIRO (TABLETS) [Concomitant]
  15. DIGOXIN [Concomitant]

REACTIONS (6)
  - CYANOSIS [None]
  - DEPRESSED LEVEL OF CONSCIOUSNESS [None]
  - DISORIENTATION [None]
  - DRUG INTERACTION [None]
  - GRAND MAL CONVULSION [None]
  - SEROTONIN SYNDROME [None]
